APPROVED DRUG PRODUCT: TOLTERODINE TARTRATE
Active Ingredient: TOLTERODINE TARTRATE
Strength: 1MG
Dosage Form/Route: TABLET;ORAL
Application: A205399 | Product #001 | TE Code: AB
Applicant: UNICHEM LABORATORIES LTD
Approved: Aug 5, 2020 | RLD: No | RS: No | Type: RX